FAERS Safety Report 8803096 (Version 1)
Quarter: 2012Q4

REPORT INFORMATION
  Report Type: 
  Country: CH (occurrence: SZ)
  Receive Date: 20120924
  Receipt Date: 20120924
  Transmission Date: 20130627
  Serious: Yes (Life-Threatening, Other)
  Sender: FDA-Public Use
  Company Number: SZ-ASTRAZENECA-2012SE73242

PATIENT
  Age: 48 Year
  Sex: Male

DRUGS (5)
  1. SEROQUEL XR [Suspect]
     Indication: PERSONALITY DISORDER
     Route: 048
     Dates: start: 20120707, end: 20120707
  2. SEROQUEL XR [Suspect]
     Indication: PERSONALITY DISORDER
     Route: 048
     Dates: start: 201201, end: 201207
  3. TEMESTA [Concomitant]
     Route: 048
     Dates: start: 201201
  4. REMERON [Concomitant]
     Route: 048
     Dates: start: 201201
  5. STILNOX [Concomitant]
     Route: 048
     Dates: start: 201201

REACTIONS (4)
  - Suicide attempt [Recovered/Resolved]
  - Depressed level of consciousness [Recovered/Resolved]
  - Rhabdomyolysis [Recovering/Resolving]
  - Renal failure [Recovering/Resolving]
